FAERS Safety Report 5063488-1 (Version None)
Quarter: 2006Q3

REPORT INFORMATION
  Report Type: 
  Country: None (occurrence: None)
  Receive Date: 20060727
  Receipt Date: 20051122
  Transmission Date: 20061208
  Serious: Yes (Hospitalization)
  Sender: FDA-Public Use
  Company Number: PHHO2005JP18430

PATIENT
  Age: 90 Year
  Sex: Female
  Weight: 45 kg

DRUGS (6)
  1. ASPIRIN [Concomitant]
     Indication: CEREBRAL INFARCTION
     Dosage: UNK, UNK
     Dates: start: 20030405
  2. GASTER D [Concomitant]
     Indication: GASTRIC ULCER
     Dates: start: 20030405
  3. CYANOCOBALAMIN [Concomitant]
     Dates: start: 20030405
  4. MAGNESIUM OXIDE [Concomitant]
     Indication: CONSTIPATION
     Dates: start: 20030401
  5. THYRADIN S [Concomitant]
     Indication: HYPOTHYROIDISM
     Dates: start: 20050401
  6. DIOVAN [Suspect]
     Indication: HYPERTENSION
     Dosage: 80 MG, QD
     Route: 048
     Dates: start: 20030530, end: 20050127

REACTIONS (2)
  - ACUTE MYOCARDIAL INFARCTION [None]
  - CHEST PAIN [None]
